FAERS Safety Report 20671135 (Version 3)
Quarter: 2022Q2

REPORT INFORMATION
  Report Type: Spontaneous
  Country: EG (occurrence: EG)
  Receive Date: 20220404
  Receipt Date: 20220524
  Transmission Date: 20220721
  Serious: Yes (Death, Hospitalization, Other)
  Sender: FDA-Public Use
  Company Number: EG-PFIZER INC-202200466479

PATIENT
  Age: 55 Year
  Sex: Female

DRUGS (4)
  1. IBRANCE [Suspect]
     Active Substance: PALBOCICLIB
     Indication: Breast cancer
     Dosage: 75 MG, ONE CAP DAILY FOR 3 WEEKS ON AND 1 WEEK OFF
     Route: 048
  2. FASLODEX [Concomitant]
     Active Substance: FULVESTRANT
     Dosage: 500 MG, MONTHLY
  3. CALCITRON [COLECALCIFEROL] [Concomitant]
     Dosage: 600 MG, DAILY
  4. CIPRALEX [Concomitant]
     Active Substance: ESCITALOPRAM OXALATE
     Dosage: 10 MG, DAILY BEFORE SLEEPING (OLD RX)

REACTIONS (4)
  - Death [Fatal]
  - Intestinal obstruction [Unknown]
  - Renal function test abnormal [Unknown]
  - Hypotension [Unknown]
